FAERS Safety Report 9858556 (Version 2)
Quarter: 2014Q2

REPORT INFORMATION
  Report Type: Spontaneous
  Country: JP (occurrence: JP)
  Receive Date: 20140131
  Receipt Date: 20140421
  Transmission Date: 20141212
  Serious: Yes (Hospitalization)
  Sender: FDA-Public Use
  Company Number: JP-SA-2014SA011848

PATIENT
  Age: 46 Year
  Sex: Male
  Weight: 61 kg

DRUGS (6)
  1. FLUOROURACIL [Suspect]
     Indication: COLON CANCER
     Dosage: 10 CYCLES
     Route: 041
     Dates: start: 200806, end: 200812
  2. FLUOROURACIL [Suspect]
     Indication: METASTASES TO LIVER
     Dosage: 10 CYCLES
     Route: 041
     Dates: start: 200806, end: 200812
  3. OXALIPLATIN [Suspect]
     Indication: COLON CANCER
     Dosage: 10 CYCLES
     Route: 041
     Dates: start: 200806, end: 200812
  4. OXALIPLATIN [Suspect]
     Indication: METASTASES TO LIVER
     Dosage: 10 CYCLES
     Route: 041
     Dates: start: 200806, end: 200812
  5. LEUCOVORIN [Suspect]
     Indication: COLON CANCER
     Dosage: 10 CYCLES
     Route: 041
     Dates: start: 200806, end: 200812
  6. LEUCOVORIN [Suspect]
     Indication: METASTASES TO LIVER
     Dosage: 10 CYCLES
     Route: 041
     Dates: start: 200806, end: 200812

REACTIONS (12)
  - Periportal sinus dilatation [Unknown]
  - Portal vein occlusion [Unknown]
  - Portal hypertension [Unknown]
  - Varices oesophageal [Recovered/Resolved]
  - Gastric varices [Recovered/Resolved]
  - Liver disorder [Unknown]
  - Aspartate aminotransferase increased [Unknown]
  - Alanine aminotransferase increased [Unknown]
  - Gamma-glutamyltransferase increased [Unknown]
  - Hepatic steatosis [Unknown]
  - Splenomegaly [Unknown]
  - Platelet count decreased [Unknown]
